FAERS Safety Report 7926192-5 (Version None)
Quarter: 2011Q4

REPORT INFORMATION
  Report Type: 
  Country: None (occurrence: None)
  Receive Date: 20111118
  Receipt Date: 20110419
  Transmission Date: 20120403
  Serious: No
  Sender: FDA-Public Use
  Company Number: US-AMGEN-USASP2011020693

PATIENT
  Age: 59 Year
  Sex: Female

DRUGS (1)
  1. ENBREL [Suspect]
     Indication: RHEUMATOID ARTHRITIS
     Dosage: 50 MG, QWK
     Dates: start: 20110330

REACTIONS (15)
  - VOMITING [None]
  - CHILLS [None]
  - PAIN [None]
  - DIARRHOEA [None]
  - COUGH [None]
  - MUSCULAR WEAKNESS [None]
  - OEDEMA PERIPHERAL [None]
  - INJECTION SITE SWELLING [None]
  - PAIN IN EXTREMITY [None]
  - INJECTION SITE PAIN [None]
  - DYSURIA [None]
  - JOINT RANGE OF MOTION DECREASED [None]
  - VIRAL INFECTION [None]
  - ABDOMINAL PAIN UPPER [None]
  - WEIGHT DECREASED [None]
